FAERS Safety Report 14884950 (Version 1)
Quarter: 2018Q2

REPORT INFORMATION
  Report Type: Spontaneous
  Country: GB (occurrence: GB)
  Receive Date: 20180511
  Receipt Date: 20180511
  Transmission Date: 20180711
  Serious: Yes (Hospitalization, Other)
  Sender: FDA-Public Use
  Company Number: GB-009507513-1804GBR002585

PATIENT
  Age: 59 Year
  Sex: Male

DRUGS (37)
  1. POLIHEXANIDE [Suspect]
     Active Substance: POLIHEXANIDE
     Indication: ACANTHAMOEBA KERATITIS
     Dosage: UNK, QID
     Route: 065
  2. TACROLIMUS. [Concomitant]
     Active Substance: TACROLIMUS
     Indication: TRANSPLANT FAILURE
     Dosage: 1 MG, BID
     Route: 048
  3. GENTAMICIN SULFATE. [Concomitant]
     Active Substance: GENTAMICIN SULFATE
     Indication: ACANTHAMOEBA KERATITIS
     Dosage: UNK UNK, QID
     Route: 065
  4. PREDNISOLONE. [Concomitant]
     Active Substance: PREDNISOLONE
     Indication: ACANTHAMOEBA KERATITIS
     Dosage: UNK UNK, QID
     Route: 065
  5. POSACONAZOLE [Suspect]
     Active Substance: POSACONAZOLE
     Dosage: 300 MG, QD
     Route: 048
  6. HEXAMIDINE [Concomitant]
     Active Substance: HEXAMIDINE
     Dosage: 0.1 %, UNK HOURLY
  7. HEXAMIDINE [Concomitant]
     Active Substance: HEXAMIDINE
     Dosage: UNK
  8. DEXAMETHASONE. [Suspect]
     Active Substance: DEXAMETHASONE
     Dosage: 0.1 MG, UNK
     Route: 065
  9. VORICONAZOLE. [Suspect]
     Active Substance: VORICONAZOLE
     Dosage: 400 MG, BID
     Route: 065
  10. CHLORHEXIDINE ACETATE [Suspect]
     Active Substance: CHLORHEXIDINE ACETATE
     Dosage: 0.2 %, UNK, HOURLY
     Route: 065
  11. LEVOFLOXACIN. [Concomitant]
     Active Substance: LEVOFLOXACIN
     Indication: ACANTHAMOEBA KERATITIS
     Dosage: 0.5% HOURLY DAY AND NIGHT
     Route: 065
  12. METHYLPREDNISOLONE. [Concomitant]
     Active Substance: METHYLPREDNISOLONE
     Indication: ACANTHAMOEBA KERATITIS
     Dosage: 1 G, UNK
     Route: 042
  13. CEFUROXIME. [Concomitant]
     Active Substance: CEFUROXIME
     Indication: ACANTHAMOEBA KERATITIS
     Dosage: UNK UNK, QID
     Route: 065
  14. MILTEFOSINE [Concomitant]
     Active Substance: MILTEFOSINE
     Indication: ACANTHAMOEBA KERATITIS
     Dosage: 50 MG, TID, 2.5 MG/KG/DAY
     Route: 048
  15. MILTEFOSINE [Concomitant]
     Active Substance: MILTEFOSINE
     Indication: PROPHYLAXIS
  16. DEXAMETHASONE. [Suspect]
     Active Substance: DEXAMETHASONE
     Indication: ACANTHAMOEBA KERATITIS
     Dosage: 0.4 MG, QD
     Route: 065
  17. POLIHEXANIDE [Suspect]
     Active Substance: POLIHEXANIDE
     Dosage: UNK, TWO HOURLY DAY ONLY
     Route: 065
  18. POLIHEXANIDE [Suspect]
     Active Substance: POLIHEXANIDE
     Dosage: UNK, HOURLY DAY AND NIGHT
     Route: 065
  19. VORICONAZOLE. [Suspect]
     Active Substance: VORICONAZOLE
     Dosage: 1 %, UNK,
     Route: 065
  20. HEXAMIDINE [Concomitant]
     Active Substance: HEXAMIDINE
     Indication: ACANTHAMOEBA KERATITIS
     Dosage: 0.02 %, UNK 4 TIMES DAILY
     Route: 065
  21. IMIDAZOLE SALICYLATE [Concomitant]
     Indication: ACANTHAMOEBA KERATITIS
     Dosage: UNK
     Route: 065
  22. VORICONAZOLE. [Suspect]
     Active Substance: VORICONAZOLE
     Indication: ACANTHAMOEBA KERATITIS
     Dosage: 200 MG, BID
     Route: 065
  23. CHLORHEXIDINE ACETATE [Suspect]
     Active Substance: CHLORHEXIDINE ACETATE
     Indication: ACANTHAMOEBA KERATITIS
     Dosage: 0.2 UNK, UNK, 2 HOURLY.
  24. TACROLIMUS. [Concomitant]
     Active Substance: TACROLIMUS
     Indication: PROPHYLAXIS
  25. HEXAMIDINE [Concomitant]
     Active Substance: HEXAMIDINE
     Dosage: 0.1 %, UNK 2-HOURLY
  26. GENTAMICIN SULFATE. [Concomitant]
     Active Substance: GENTAMICIN SULFATE
     Dosage: UNK, HOURLY DAY AND NIGHT
     Route: 065
  27. POLIHEXANIDE [Suspect]
     Active Substance: POLIHEXANIDE
     Dosage: UNK, HOURLY DAYTIME ONLY
     Route: 065
  28. VORICONAZOLE. [Suspect]
     Active Substance: VORICONAZOLE
     Dosage: LNTRACAMERAL; OTHER
     Route: 050
  29. CHLORHEXIDINE ACETATE [Suspect]
     Active Substance: CHLORHEXIDINE ACETATE
     Dosage: UNK, DAY AND NIGHT
     Route: 065
  30. PRED FORTE [Concomitant]
     Active Substance: PREDNISOLONE ACETATE
     Dosage: UNK, HOURLY
  31. CHLORHEXIDINE ACETATE [Suspect]
     Active Substance: CHLORHEXIDINE ACETATE
     Dosage: 0.02 %, HOURLY DAY AND NIGHT
     Route: 065
  32. HEXAMIDINE [Concomitant]
     Active Substance: HEXAMIDINE
     Dosage: 006 %, UNK, HOURLY DAY AND NIGHT
  33. LEVOFLOXACIN. [Concomitant]
     Active Substance: LEVOFLOXACIN
     Dosage: 0.5 %, UNK (REDUCED TO HOURLY DAYTIME ONLY)
     Route: 065
  34. POSACONAZOLE [Suspect]
     Active Substance: POSACONAZOLE
     Indication: ACANTHAMOEBA KERATITIS
     Dosage: 300 MG, BID LOADING DOSE
     Route: 048
  35. POLIHEXANIDE [Suspect]
     Active Substance: POLIHEXANIDE
     Dosage: UNK
  36. PRED FORTE [Concomitant]
     Active Substance: PREDNISOLONE ACETATE
     Indication: ACANTHAMOEBA KERATITIS
     Dosage: UNK UNK, QID
     Route: 065
  37. LEVOFLOXACIN. [Concomitant]
     Active Substance: LEVOFLOXACIN
     Dosage: UNK, TWO HOURLY DAY ONLY
     Route: 065

REACTIONS (5)
  - Drug ineffective for unapproved indication [Unknown]
  - Condition aggravated [Unknown]
  - Off label use [Unknown]
  - Acanthamoeba keratitis [Not Recovered/Not Resolved]
  - Adverse drug reaction [Unknown]
